FAERS Safety Report 6266208-8 (Version None)
Quarter: 2009Q3

REPORT INFORMATION
  Report Type: 
  Country: None (occurrence: None)
  Receive Date: 20090713
  Receipt Date: 20090707
  Transmission Date: 20100115
  Serious: Yes (Hospitalization)
  Sender: FDA-Public Use
  Company Number: FR-AVENTIS-200912523FR

PATIENT
  Age: 39 Year
  Sex: Male

DRUGS (7)
  1. LOVENOX [Suspect]
     Indication: THROMBOSIS PROPHYLAXIS
     Route: 058
     Dates: start: 20090317, end: 20090331
  2. DIPRIVAN [Suspect]
     Route: 042
     Dates: start: 20090324, end: 20090324
  3. MIDAZOLAM HCL [Suspect]
     Route: 042
     Dates: start: 20090324, end: 20090324
  4. SUFENTA PRESERVATIVE FREE [Suspect]
     Route: 042
     Dates: start: 20090324, end: 20090324
  5. SEVORANE [Suspect]
     Route: 055
     Dates: start: 20090324, end: 20090324
  6. CEFAZOLIN [Suspect]
     Route: 042
     Dates: start: 20090324, end: 20090324
  7. ACETAMINOPHEN [Suspect]
     Indication: PAIN
     Route: 042
     Dates: start: 20090324, end: 20090331

REACTIONS (3)
  - CHEILITIS [None]
  - ERYTHEMA [None]
  - RASH MACULO-PAPULAR [None]
